FAERS Safety Report 7105715-2 (Version None)
Quarter: 2010Q4

REPORT INFORMATION
  Report Type: 
  Country: None (occurrence: None)
  Receive Date: 20101116
  Receipt Date: 20101104
  Transmission Date: 20110411
  Serious: Yes (Other)
  Sender: FDA-Public Use
  Company Number: PHEH2008US11943

PATIENT
  Sex: Female

DRUGS (6)
  1. AREDIA [Suspect]
     Indication: BREAST CANCER
     Dosage: 90 MG, QMO
     Route: 042
     Dates: start: 19981001, end: 20020315
  2. TAMOXIFEN CITRATE [Concomitant]
  3. FOLIC ACID [Concomitant]
  4. COUMADIN [Concomitant]
  5. QUININE [Concomitant]
  6. ALLEGRA [Concomitant]

REACTIONS (13)
  - CHEST WALL MASS [None]
  - COCHLEA IMPLANT [None]
  - DEAFNESS NEUROSENSORY [None]
  - HYPERLIPIDAEMIA [None]
  - KERATITIS [None]
  - LOCAL SWELLING [None]
  - LYMPHOEDEMA [None]
  - MASS EXCISION [None]
  - NECK PAIN [None]
  - SUBCLAVIAN VEIN THROMBOSIS [None]
  - THYROID MASS [None]
  - VENOUS PRESSURE JUGULAR INCREASED [None]
  - VENOUS THROMBOSIS [None]
